FAERS Safety Report 8557453-7 (Version None)
Quarter: 2012Q3

REPORT INFORMATION
  Report Type: 
  Country: None (occurrence: None)
  Receive Date: 20120720
  Receipt Date: 20120709
  Transmission Date: 20120928
  Serious: Yes (Hospitalization, Other)
  Sender: FDA-Public Use
  Company Number: 2012P1048748

PATIENT
  Age: 64 Year
  Sex: Female
  Weight: 58.0604 kg

DRUGS (5)
  1. FENTANYL [Concomitant]
  2. MORPHINE SULFATE [Suspect]
     Indication: SPINAL FUSION SURGERY
  3. MORPHINE SULFATE [Suspect]
     Indication: PROCEDURAL PAIN
  4. DILAUDID [Suspect]
     Indication: PROCEDURAL PAIN
  5. DILAUDID [Suspect]
     Indication: HIP FRACTURE

REACTIONS (6)
  - MIOSIS [None]
  - DRUG WITHDRAWAL SYNDROME [None]
  - HIP FRACTURE [None]
  - DELUSION [None]
  - PROCEDURAL PAIN [None]
  - HYPOTENSION [None]
